FAERS Safety Report 7458720-0 (Version None)
Quarter: 2011Q2

REPORT INFORMATION
  Report Type: 
  Country: None (occurrence: None)
  Receive Date: 20110504
  Receipt Date: 20110428
  Transmission Date: 20111010
  Serious: Yes (Death, Hospitalization)
  Sender: FDA-Public Use
  Company Number: DE-JNJFOC-20100210236

PATIENT
  Age: 29 Year
  Sex: Male
  Weight: 99.5 kg

DRUGS (4)
  1. RISPERDAL CONSTA [Suspect]
     Indication: SCHIZOPHRENIA
     Route: 030
  2. FLUPENTIXOL [Suspect]
     Indication: SCHIZOPHRENIA
  3. DIAZEPAM [Concomitant]
     Indication: SCHIZOPHRENIA
  4. ZELDOX [Suspect]
     Indication: SCHIZOPHRENIA
     Route: 065

REACTIONS (2)
  - PSYCHOTIC DISORDER [None]
  - COMPLETED SUICIDE [None]
